FAERS Safety Report 13592369 (Version 2)
Quarter: 2017Q2

REPORT INFORMATION
  Report Type: Spontaneous
  Country: US (occurrence: US)
  Receive Date: 20170530
  Receipt Date: 20170629
  Transmission Date: 20170830
  Serious: Yes (Death)
  Sender: FDA-Public Use
  Company Number: US-PFIZER INC-2017233490

PATIENT
  Age: 72 Year
  Sex: Female
  Weight: 79 kg

DRUGS (6)
  1. ATROPINE. [Concomitant]
     Active Substance: ATROPINE
     Indication: SECRETION DISCHARGE
     Dosage: UNK
     Dates: start: 20170623, end: 20170625
  2. ACYCLOVIR. [Concomitant]
     Active Substance: ACYCLOVIR
     Indication: ANTIFUNGAL TREATMENT
     Dosage: 800 MG, 2X/DAY (ON AND OFF MEDICATION)
     Dates: start: 201601, end: 201706
  3. SCOPOLAMINE [Concomitant]
     Active Substance: SCOPOLAMINE
     Indication: SECRETION DISCHARGE
     Dosage: UNK
     Dates: start: 20170623, end: 20170625
  4. BOSULIF [Suspect]
     Active Substance: BOSUTINIB MONOHYDRATE
     Indication: ACUTE LYMPHOCYTIC LEUKAEMIA
     Dosage: 500 MG, ONCE DAILY
     Route: 048
     Dates: start: 201704, end: 201706
  5. MORPHINE [Concomitant]
     Active Substance: MORPHINE
     Indication: PAIN
     Dosage: UNK (LIQUID)
     Route: 048
     Dates: start: 20170622, end: 20170625
  6. ACYCLOVIR. [Concomitant]
     Active Substance: ACYCLOVIR
     Indication: LEUKAEMIA

REACTIONS (2)
  - Infection [Fatal]
  - Asthenia [Recovering/Resolving]

NARRATIVE: CASE EVENT DATE: 201705
